FAERS Safety Report 4457751-2 (Version None)
Quarter: 2004Q3

REPORT INFORMATION
  Report Type: 
  Country: None (occurrence: None)
  Receive Date: 20040831
  Receipt Date: 20040604
  Transmission Date: 20050211
  Serious: No
  Sender: FDA-Public Use
  Company Number: FABR-10622

PATIENT
  Age: 41 Year
  Sex: Male
  Weight: 63.9572 kg

DRUGS (4)
  1. FABRAZYME [Suspect]
     Indication: FABRY'S DISEASE
     Dosage: 70 MG Q2WKS IV
     Route: 042
     Dates: start: 20040507
  2. ZANTAC [Concomitant]
  3. IBUPROFEN [Concomitant]
  4. TYLENOL [Concomitant]

REACTIONS (6)
  - ANXIETY [None]
  - DYSPNOEA [None]
  - NAUSEA [None]
  - PERIORBITAL OEDEMA [None]
  - PRURITUS [None]
  - URTICARIA [None]
